FAERS Safety Report 6554299-6 (Version None)
Quarter: 2010Q1

REPORT INFORMATION
  Report Type: 
  Country: None (occurrence: None)
  Receive Date: 20100127
  Receipt Date: 20100115
  Transmission Date: 20100710
  Serious: Yes (Other)
  Sender: FDA-Public Use
  Company Number: AT-WYE-H12713909

PATIENT
  Age: 34 Year
  Sex: Female

DRUGS (5)
  1. PANTOPRAZOLE [Suspect]
     Route: 048
  2. WELLBUTRIN [Concomitant]
     Dosage: 150 MG, FREQUENCY UNKNOWN
     Route: 048
  3. TRAZODONE HCL [Concomitant]
     Dosage: 250 MG, FREQUENCY UNKNOWN
     Route: 048
  4. FERRETAB COMP [Concomitant]
  5. LAMICTAL [Concomitant]
     Dosage: 100 MG, FREQUENCY UNKNOWN
     Route: 048

REACTIONS (1)
  - SUDDEN HEARING LOSS [None]
